FAERS Safety Report 10100409 (Version 1)
Quarter: 2014Q2

REPORT INFORMATION
  Report Type: Spontaneous
  Country: JP (occurrence: JP)
  Receive Date: 20140423
  Receipt Date: 20140423
  Transmission Date: 20141212
  Serious: Yes (Death)
  Sender: FDA-Public Use
  Company Number: JP-ALLERGAN-1408100US

PATIENT
  Age: 19 Year
  Sex: Male

DRUGS (5)
  1. BOTOX [Suspect]
     Indication: PRODUCT USED FOR UNKNOWN INDICATION
     Dosage: UNK, SINGLE
     Route: 030
     Dates: start: 20100722, end: 20100722
  2. BOTOX [Suspect]
     Dosage: UNK, SINGLE
     Dates: start: 20120322, end: 20120322
  3. DEPAKENE [Concomitant]
     Indication: EPILEPSY
     Route: 048
  4. UNKNOWNDRUG [Concomitant]
     Indication: EPILEPSY
     Route: 065
  5. RIVOTRIL [Concomitant]
     Indication: EPILEPSY
     Route: 048

REACTIONS (1)
  - Rett^s disorder [Fatal]
